FAERS Safety Report 8419385-4 (Version None)
Quarter: 2012Q2

REPORT INFORMATION
  Report Type: 
  Country: None (occurrence: None)
  Receive Date: 20120607
  Receipt Date: 20120531
  Transmission Date: 20120825
  Serious: Yes (Hospitalization)
  Sender: FDA-Public Use
  Company Number: US-GLAXOSMITHKLINE-A0875233A

PATIENT
  Age: 71 Year
  Sex: Male
  Weight: 111.4 kg

DRUGS (2)
  1. AVANDAMET [Suspect]
     Indication: TYPE 2 DIABETES MELLITUS
     Route: 048
     Dates: start: 20051001, end: 20051101
  2. AVANDIA [Suspect]
     Indication: TYPE 2 DIABETES MELLITUS
     Dosage: 4MG TWICE PER DAY
     Route: 048
     Dates: start: 20020301, end: 20070301

REACTIONS (6)
  - SINUS ARRHYTHMIA [None]
  - THROMBOSIS [None]
  - CARDIAC DISORDER [None]
  - CAROTID ARTERY OCCLUSION [None]
  - BRADYARRHYTHMIA [None]
  - PAIN [None]
